FAERS Safety Report 6875710-7 (Version None)
Quarter: 2010Q3

REPORT INFORMATION
  Report Type: 
  Country: None (occurrence: None)
  Receive Date: 20100727
  Receipt Date: 20070712
  Transmission Date: 20110219
  Serious: Yes (Hospitalization, Other)
  Sender: FDA-Public Use
  Company Number: US-PFIZER INC-2006111500

PATIENT
  Sex: Female
  Weight: 68 kg

DRUGS (8)
  1. CELEBREX [Suspect]
     Indication: OSTEOARTHRITIS
     Route: 048
     Dates: start: 19990222, end: 19990916
  2. VIOXX [Suspect]
     Route: 048
     Dates: start: 19990520, end: 20010822
  3. ACETYLSALICYLIC ACID SRT [Concomitant]
     Dates: start: 20010824, end: 20061229
  4. ACETAMINOPHEN AND HYDROCODONE BITARTRATE [Concomitant]
     Dates: start: 20031128, end: 20061229
  5. HYZAAR [Concomitant]
     Dates: start: 19990206, end: 20061229
  6. VERAPAMIL [Concomitant]
     Dates: start: 20001220, end: 20061229
  7. PREMARIN [Concomitant]
     Dates: start: 19990217, end: 20061229
  8. SYNTHROID [Concomitant]
     Dates: start: 20060403, end: 20061229

REACTIONS (1)
  - CEREBROVASCULAR ACCIDENT [None]
